FAERS Safety Report 22531676 (Version 1)
Quarter: 2023Q2

REPORT INFORMATION
  Report Type: Spontaneous
  Country: US (occurrence: US)
  Receive Date: 20230607
  Receipt Date: 20230607
  Transmission Date: 20230722
  Serious: Yes (Hospitalization)
  Sender: FDA-Public Use
  Company Number: US-drreddys-LIT/USA/23/0166261

PATIENT
  Age: 33 Year
  Sex: Male

DRUGS (4)
  1. COLCHICINE [Suspect]
     Active Substance: COLCHICINE
     Indication: Colitis ulcerative
  2. IBUPROFEN [Suspect]
     Active Substance: IBUPROFEN
     Indication: Colitis ulcerative
  3. MESALAMINE [Suspect]
     Active Substance: MESALAMINE
     Indication: Colitis ulcerative
  4. MESALAMINE [Suspect]
     Active Substance: MESALAMINE
     Dosage: EVERY EVENING
     Route: 054

REACTIONS (2)
  - Myopericarditis [Unknown]
  - Product use in unapproved indication [Unknown]
